FAERS Safety Report 4989163-7 (Version None)
Quarter: 2006Q2

REPORT INFORMATION
  Report Type: 
  Country: None (occurrence: None)
  Receive Date: 20060425
  Receipt Date: 20060411
  Transmission Date: 20061013
  Serious: Yes (Other)
  Sender: FDA-Public Use
  Company Number: 2006050875

PATIENT
  Age: 81 Year
  Sex: Female
  Weight: 53.0709 kg

DRUGS (7)
  1. ZOLOFT [Suspect]
     Indication: DEPRESSION
     Dosage: 50 MG (50 MG, 1 IN 1 D) ORAL
     Route: 048
     Dates: start: 20060301, end: 20060101
  2. LORAZEPAM [Concomitant]
  3. ZOCOR [Concomitant]
  4. FOSAMAX [Concomitant]
  5. VITAMINS [Concomitant]
  6. CALCIUM GLUCONATE [Concomitant]
  7. AMBIEN [Concomitant]

REACTIONS (3)
  - CONFUSIONAL STATE [None]
  - DRUG INEFFECTIVE [None]
  - IMPAIRED DRIVING ABILITY [None]
